FAERS Safety Report 9026035 (Version 3)
Quarter: 2013Q2

REPORT INFORMATION
  Report Type: Spontaneous
  Country: US (occurrence: US)
  Receive Date: 20130122
  Receipt Date: 20130605
  Transmission Date: 20140414
  Serious: No
  Sender: FDA-Public Use
  Company Number: US-009507513-1301USA008847

PATIENT
  Age: 23 Year
  Sex: Female
  Weight: 68.48 kg

DRUGS (1)
  1. IMPLANON [Suspect]
     Indication: CONTRACEPTION
     Dosage: UNK
     Route: 058
     Dates: start: 20100713

REACTIONS (3)
  - Hypoaesthesia [Not Recovered/Not Resolved]
  - Menorrhagia [Not Recovered/Not Resolved]
  - Dizziness [Not Recovered/Not Resolved]
